FAERS Safety Report 7090433-X (Version None)
Quarter: 2010Q4

REPORT INFORMATION
  Report Type: 
  Country: None (occurrence: None)
  Receive Date: 20101109
  Receipt Date: 20101015
  Transmission Date: 20110411
  Serious: Yes (Death)
  Sender: FDA-Public Use
  Company Number: US-BAYER-200939654NA

PATIENT
  Age: 28 Year
  Sex: Female
  Weight: 71 kg

DRUGS (12)
  1. YASMIN [Suspect]
     Indication: CONTRACEPTION
     Dates: start: 20051101
  2. METHADONE HCL [Concomitant]
  3. SOMA [Concomitant]
  4. VICODIN [Concomitant]
  5. ALBUTEROL [Concomitant]
  6. DILAUDID [Concomitant]
  7. MOTRIN [Concomitant]
  8. EFFEXOR [Concomitant]
  9. TYLENOL [Concomitant]
  10. ZANTAC [Concomitant]
     Route: 042
  11. LEVAQUIN [Concomitant]
     Indication: PNEUMONIA
  12. MUCOMYST [Concomitant]
     Indication: DRUG TOXICITY

REACTIONS (8)
  - ACUTE HEPATIC FAILURE [None]
  - BRAIN INJURY [None]
  - COMA [None]
  - DIZZINESS [None]
  - HEPATIC ENCEPHALOPATHY [None]
  - HYPOGLYCAEMIA [None]
  - LOSS OF CONSCIOUSNESS [None]
  - NAUSEA [None]
